FAERS Safety Report 7131607-9 (Version None)
Quarter: 2010Q4

REPORT INFORMATION
  Report Type: 
  Country: None (occurrence: None)
  Receive Date: 20101201
  Receipt Date: 20101119
  Transmission Date: 20110411
  Serious: Yes (Other)
  Sender: FDA-Public Use
  Company Number: US-ELI_LILLY_AND_COMPANY-US201011005812

PATIENT
  Sex: Female
  Weight: 140.59 kg

DRUGS (6)
  1. BYETTA [Suspect]
     Indication: TYPE 2 DIABETES MELLITUS
     Dosage: 10 UG, 2/D
     Route: 058
  2. METFORMIN HCL [Concomitant]
     Indication: TYPE 2 DIABETES MELLITUS
     Dosage: 1000 MG, 2/D
     Route: 048
  3. GLIMEPIRIDE [Concomitant]
     Indication: TYPE 2 DIABETES MELLITUS
     Dosage: 4 MG, DAILY (1/D)
     Route: 048
  4. OMEPRAZOLE [Concomitant]
     Indication: HYPERCHLORHYDRIA
     Dosage: 20 MG, DAILY (1/D)
     Route: 048
     Dates: end: 20101116
  5. OMEPRAZOLE [Concomitant]
     Dosage: 20 MG, 2/D
     Route: 048
     Dates: start: 20101116
  6. ANTIHYPERTENSIVES [Concomitant]

REACTIONS (8)
  - ABDOMINAL DISCOMFORT [None]
  - HYPERCHLORHYDRIA [None]
  - HYPOGLYCAEMIC UNCONSCIOUSNESS [None]
  - MALAISE [None]
  - NAUSEA [None]
  - PRESYNCOPE [None]
  - TREMOR [None]
  - VOMITING [None]
